FAERS Safety Report 9013294 (Version 1)
Quarter: 2013Q1

REPORT INFORMATION
  Report Type: Spontaneous
  Country: US (occurrence: None)
  Receive Date: 20130107
  Receipt Date: 20130107
  Transmission Date: 20140127
  Serious: Yes (Death)
  Sender: FDA-Public Use
  Company Number: None

PATIENT
  Age: 64 Year
  Sex: Male
  Weight: 101 kg

DRUGS (3)
  1. COUMADIN [Suspect]
     Route: 048
  2. DIPYRIDAMOLE [Suspect]
  3. ASA [Suspect]

REACTIONS (4)
  - Fall [None]
  - Head injury [None]
  - Subdural haematoma [None]
  - Depressed level of consciousness [None]
